FAERS Safety Report 24760831 (Version 1)
Quarter: 2024Q4

REPORT INFORMATION
  Report Type: Spontaneous
  Country: BE (occurrence: BE)
  Receive Date: 20241220
  Receipt Date: 20241220
  Transmission Date: 20250114
  Serious: Yes (Hospitalization)
  Sender: JOHNSON AND JOHNSON
  Company Number: None

PATIENT
  Age: 14 Year
  Sex: Female

DRUGS (1)
  1. RISPERDAL [Suspect]
     Active Substance: RISPERIDONE
     Indication: Intentional self-injury
     Dosage: 100 ML, ONCE
     Route: 048
     Dates: start: 20201017

REACTIONS (3)
  - Apathy [Not Recovered/Not Resolved]
  - Tachycardia [Unknown]
  - Intentional overdose [Unknown]
